FAERS Safety Report 18845077 (Version 1)
Quarter: 2021Q1

REPORT INFORMATION
  Report Type: Report from Study
  Country: CA (occurrence: CA)
  Receive Date: 20210203
  Receipt Date: 20210203
  Transmission Date: 20210419
  Serious: No
  Sender: FDA-Public Use
  Company Number: CA-EXELIXIS-CABO-20031117

PATIENT
  Sex: Male
  Weight: 92.2 kg

DRUGS (3)
  1. CABOMETYX [Suspect]
     Active Substance: CABOZANTINIB S-MALATE
     Dosage: 40 MG, QD
     Route: 048
     Dates: start: 20200702, end: 20200901
  2. CABOMETYX [Suspect]
     Active Substance: CABOZANTINIB S-MALATE
     Dosage: 60 MG, QOD
     Route: 048
  3. CABOMETYX [Suspect]
     Active Substance: CABOZANTINIB S-MALATE
     Indication: RENAL CELL CARCINOMA
     Dosage: 60 MG, QD
     Route: 048
     Dates: start: 20200128

REACTIONS (7)
  - Peripheral swelling [Recovered/Resolved]
  - Diarrhoea [Recovered/Resolved]
  - Oral pain [Recovered/Resolved]
  - Malignant neoplasm progression [Unknown]
  - Inappropriate schedule of product administration [Unknown]
  - Pain in extremity [Recovered/Resolved]
  - Blister [Recovering/Resolving]
